FAERS Safety Report 22362090 (Version 1)
Quarter: 2023Q2

REPORT INFORMATION
  Report Type: Spontaneous
  Country: US (occurrence: US)
  Receive Date: 20230524
  Receipt Date: 20230524
  Transmission Date: 20230721
  Serious: No
  Sender: FDA-Public Use
  Company Number: US-BRISTOL-MYERS SQUIBB COMPANY-2023-073258

PATIENT
  Age: 70 Year
  Sex: Female

DRUGS (1)
  1. ABRAXANE [Suspect]
     Active Substance: PACLITAXEL
     Indication: Breast cancer
     Dosage: DOSE : 184MG;     FREQ : DAYS 1,8 AND 15 OF A 28 DAY CYCLE
     Route: 042

REACTIONS (2)
  - Adverse event [Unknown]
  - Off label use [Unknown]
